FAERS Safety Report 16946937 (Version 2)
Quarter: 2019Q4

REPORT INFORMATION
  Report Type: Spontaneous
  Country: US (occurrence: US)
  Receive Date: 20191022
  Receipt Date: 20191107
  Transmission Date: 20200122
  Serious: Yes (Hospitalization)
  Sender: FDA-Public Use
  Company Number: US-ASTRAZENECA-2019SF46897

PATIENT
  Age: 79 Year
  Sex: Female
  Weight: 68.9 kg

DRUGS (26)
  1. CELEBREX [Concomitant]
     Active Substance: CELECOXIB
  2. GUAIFENESIN. [Concomitant]
     Active Substance: GUAIFENESIN
  3. CYANOCOBALAMIN, PYRIDOXINE [Concomitant]
  4. AMLODIPINE [Concomitant]
     Active Substance: AMLODIPINE BESYLATE
  5. XELJANZ [Suspect]
     Active Substance: TOFACITINIB CITRATE
     Indication: RHEUMATOID ARTHRITIS
     Route: 048
     Dates: start: 20130121
  6. CEVIMELINE. [Concomitant]
     Active Substance: CEVIMELINE
  7. CLARINEX [Concomitant]
     Active Substance: DESLORATADINE
  8. METAMUCIL [Concomitant]
     Active Substance: PLANTAGO SEED
  9. NALTREXONE [Concomitant]
     Active Substance: NALTREXONE
  10. GABAPENTIN. [Concomitant]
     Active Substance: GABAPENTIN
  11. SINGULAIR [Concomitant]
     Active Substance: MONTELUKAST SODIUM
  12. CARISOPRODOL. [Concomitant]
     Active Substance: CARISOPRODOL
  13. LEVOTHYROXINE. [Concomitant]
     Active Substance: LEVOTHYROXINE
  14. RANITIDINE. [Concomitant]
     Active Substance: RANITIDINE
  15. POTASSIUM CHLORIDE. [Concomitant]
     Active Substance: POTASSIUM CHLORIDE
  16. FUROSEMIDE. [Concomitant]
     Active Substance: FUROSEMIDE
  17. VITAMIN E [Concomitant]
     Active Substance: .ALPHA.-TOCOPHEROL
  18. LORAZEPAM. [Concomitant]
     Active Substance: LORAZEPAM
  19. ASPIRIN. [Concomitant]
     Active Substance: ASPIRIN
     Indication: PULMONARY EMBOLISM
  20. OSCAL [Concomitant]
     Active Substance: CALCIUM CARBONATE
  21. VITAMIN D3 [Concomitant]
     Active Substance: CHOLECALCIFEROL
  22. BUDESONIDE. [Suspect]
     Active Substance: BUDESONIDE
     Route: 055
  23. PREDNISONE. [Concomitant]
     Active Substance: PREDNISONE
     Indication: RHEUMATOID ARTHRITIS
  24. MIRABEGRON [Concomitant]
     Active Substance: MIRABEGRON
     Indication: HYPERTONIC BLADDER
  25. LEXAPRO [Concomitant]
     Active Substance: ESCITALOPRAM OXALATE
     Indication: DEPRESSION
     Dates: start: 20190325
  26. ZOLPIDEM [Concomitant]
     Active Substance: ZOLPIDEM TARTRATE

REACTIONS (3)
  - Viral infection [Recovered/Resolved]
  - Gastroenteritis [Recovered/Resolved]
  - Drug hypersensitivity [Unknown]

NARRATIVE: CASE EVENT DATE: 20190902
